FAERS Safety Report 17657068 (Version 3)
Quarter: 2022Q3

REPORT INFORMATION
  Report Type: Spontaneous
  Country: BR (occurrence: BR)
  Receive Date: 20200410
  Receipt Date: 20220930
  Transmission Date: 20221027
  Serious: Yes (Hospitalization, Other)
  Sender: FDA-Public Use
  Company Number: BR-MALLINCKRODT-T202001617

PATIENT
  Sex: Male
  Weight: 81 kg

DRUGS (8)
  1. UVADEX [Suspect]
     Active Substance: METHOXSALEN
     Indication: Cutaneous T-cell lymphoma
     Dosage: UNK (EXTRACORPOREAL, FIRST CYCLE)
     Route: 050
     Dates: start: 20200210, end: 20200211
  2. UVADEX [Suspect]
     Active Substance: METHOXSALEN
     Dosage: UNK (EXTRACORPOREAL, SECOND CYCLE, SUBSEQUENT CYCLES A TOTAL OF 5 CYCLES (10 SESSIONS OF ECP)
     Route: 050
     Dates: start: 20200227, end: 20200228
  3. UVADEX [Suspect]
     Active Substance: METHOXSALEN
     Dosage: UNK (EXTRACORPOREAL, THIRD CYCLE)
     Route: 050
     Dates: start: 20200317, end: 20200318
  4. UVADEX [Suspect]
     Active Substance: METHOXSALEN
     Dosage: UNK (EXTRACORPOREAL, ECP WAS SUSPENDED FOR ONE CYCLE AND RESUMED, FOURTH CYCLE)
     Route: 050
     Dates: start: 20200422, end: 20200423
  5. UVADEX [Suspect]
     Active Substance: METHOXSALEN
     Dosage: UNK (EXTRACORPOREAL, FIFTH CYCLE)
     Route: 050
     Dates: start: 20200526, end: 20200527
  6. HEPARIN [Concomitant]
     Active Substance: HEPARIN SODIUM
     Indication: Anticoagulant therapy
     Dosage: 10.000UI
     Route: 065
  7. INTERFERON ALFA NOS [Concomitant]
     Active Substance: INTERFERON ALFA-2A OR INTERFERON ALFA-2B
     Indication: Cutaneous T-cell lymphoma recurrent
     Dosage: 6,000,000 UI / DAY - MONDAYS, WEDNESDAYS AND FRIDAY
     Route: 065
  8. INTERFERON ALFA NOS [Concomitant]
     Active Substance: INTERFERON ALFA-2A OR INTERFERON ALFA-2B
     Dosage: UNK (INCREASED)
     Route: 065
     Dates: start: 202002

REACTIONS (6)
  - Dermatitis bullous [Unknown]
  - Pemphigoid [Unknown]
  - Drug eruption [Unknown]
  - Dermatitis exfoliative generalised [Not Recovered/Not Resolved]
  - Condition aggravated [Not Recovered/Not Resolved]
  - Pyrexia [Unknown]

NARRATIVE: CASE EVENT DATE: 20200101
